FAERS Safety Report 10401818 (Version 2)
Quarter: 2015Q3

REPORT INFORMATION
  Report Type: Report from Study
  Country: US (occurrence: US)
  Receive Date: 20140822
  Receipt Date: 20150810
  Transmission Date: 20151125
  Serious: Yes (Other)
  Sender: FDA-Public Use
  Company Number: US-ROCHE-1450190

PATIENT
  Age: 17 Year
  Sex: Female
  Weight: 81.8 kg

DRUGS (35)
  1. NUTROPIN AQ [Suspect]
     Active Substance: SOMATROPIN
     Indication: HYPOPITUITARISM
     Route: 058
  2. DDAVP [Suspect]
     Active Substance: DESMOPRESSIN ACETATE
     Indication: DIABETES INSIPIDUS
     Route: 048
  3. DDAVP [Suspect]
     Active Substance: DESMOPRESSIN ACETATE
     Route: 048
  4. SYNTHROID [Concomitant]
     Active Substance: LEVOTHYROXINE SODIUM
     Route: 048
  5. CORTEF [Concomitant]
     Active Substance: HYDROCORTISONE
     Dosage: 10 MG EVERY MORNING AND 7.5 MG EVERY EVENING
     Route: 048
  6. PROTROPIN [Suspect]
     Active Substance: SOMATREM
     Route: 058
  7. HYDROCORTISONE. [Concomitant]
     Active Substance: HYDROCORTISONE
     Dosage: 12.5 MG EVERY MORNING AND 7.5 EVERY NIGHT
     Route: 048
  8. SYNTHROID [Concomitant]
     Active Substance: LEVOTHYROXINE SODIUM
     Route: 048
  9. SYNTHROID [Concomitant]
     Active Substance: LEVOTHYROXINE SODIUM
     Route: 048
  10. HYDROCORTISONE. [Concomitant]
     Active Substance: HYDROCORTISONE
  11. PROVERA [Concomitant]
     Active Substance: MEDROXYPROGESTERONE ACETATE
     Dosage: ON DAY 12 THROUGH 24 OF THE MONTH
     Route: 065
  12. NUTROPIN AQ [Suspect]
     Active Substance: SOMATROPIN
     Indication: HYPOTHALAMO-PITUITARY DISORDER
     Dosage: 0.5 (0.1 ML) DAILY
     Route: 058
     Dates: start: 20081212, end: 20090801
  13. PROTROPIN [Suspect]
     Active Substance: SOMATREM
     Route: 058
  14. HYDROCORTISONE. [Concomitant]
     Active Substance: HYDROCORTISONE
     Dosage: 5 PER DAY
     Route: 065
  15. NUTROPIN AQ [Suspect]
     Active Substance: SOMATROPIN
     Route: 058
  16. PROTROPIN [Suspect]
     Active Substance: SOMATREM
     Indication: HYPOTHALAMO-PITUITARY DISORDER
     Route: 058
     Dates: start: 19881004
  17. DHEA [Concomitant]
     Active Substance: PRASTERONE
     Route: 065
  18. NUTROPIN AQ [Suspect]
     Active Substance: SOMATROPIN
     Indication: GROWTH HORMONE DEFICIENCY
     Route: 058
     Dates: start: 2011
  19. NUTROPIN AQ [Suspect]
     Active Substance: SOMATROPIN
     Route: 058
  20. NUTROPIN AQ [Suspect]
     Active Substance: SOMATROPIN
     Route: 058
  21. PROTROPIN [Suspect]
     Active Substance: SOMATREM
     Route: 058
  22. SYNTHROID [Concomitant]
     Active Substance: LEVOTHYROXINE SODIUM
     Route: 065
  23. LUTERA [Concomitant]
     Active Substance: ETHINYL ESTRADIOL\LEVONORGESTREL
  24. HUMATROPE [Concomitant]
     Active Substance: SOMATROPIN
     Route: 065
  25. PROTROPIN [Suspect]
     Active Substance: SOMATREM
     Route: 058
  26. RADIATION THERAPY [Concomitant]
     Active Substance: RADIATION THERAPY
     Indication: CRANIOPHARYNGIOMA
     Route: 065
     Dates: start: 1989
  27. BEYAZ [Concomitant]
     Active Substance: DROSPIRENONE\ETHINYL ESTRADIOL\LEVOMEFOLATE CALCIUM
  28. PREMARIN [Concomitant]
     Active Substance: ESTROGENS, CONJUGATED
     Dosage: ON DAY 1 THROUGH 24 OF THE MONTH
     Route: 065
  29. NUTROPIN AQ [Suspect]
     Active Substance: SOMATROPIN
     Route: 058
  30. THYROXINE [Concomitant]
     Active Substance: LEVOTHYROXINE
     Route: 065
  31. SYNTHROID [Concomitant]
     Active Substance: LEVOTHYROXINE SODIUM
     Route: 065
  32. SYNTHROID [Concomitant]
     Active Substance: LEVOTHYROXINE SODIUM
     Route: 065
  33. CORTEF [Concomitant]
     Active Substance: HYDROCORTISONE
     Dosage: 12.5 MG AT A.M AND 7.5 MG AT P.M
     Route: 065
  34. DEXAMETHASONE SODIUM PHOSPHATE. [Concomitant]
     Active Substance: DEXAMETHASONE SODIUM PHOSPHATE
     Dosage: 4 MG/ML
     Route: 065
  35. PREMARIN [Concomitant]
     Active Substance: ESTROGENS, CONJUGATED
     Dosage: AT BED TIME
     Route: 065

REACTIONS (13)
  - Feeling abnormal [Unknown]
  - Alopecia [Unknown]
  - Drug dose omission [Unknown]
  - Vomiting [Unknown]
  - Fungal infection [Unknown]
  - Asthenia [Unknown]
  - Weight increased [Unknown]
  - Insulin-like growth factor decreased [Unknown]
  - Cerebrovascular disorder [Unknown]
  - Incorrect dose administered [Unknown]
  - Menstruation irregular [Unknown]
  - Fatigue [Unknown]
  - Nocturia [Unknown]

NARRATIVE: CASE EVENT DATE: 20011121
